FAERS Safety Report 7048061-8 (Version None)
Quarter: 2010Q4

REPORT INFORMATION
  Report Type: 
  Country: None (occurrence: None)
  Receive Date: 20101015
  Receipt Date: 20101005
  Transmission Date: 20110411
  Serious: Yes (Hospitalization)
  Sender: FDA-Public Use
  Company Number: B0677729A

PATIENT
  Sex: Female

DRUGS (10)
  1. SERETIDE DISKUS [Suspect]
     Indication: ASTHMA
     Route: 055
     Dates: start: 20030101
  2. XOLAIR [Suspect]
     Indication: ASTHMA
     Dosage: 375MG EVERY TWO WEEKS
     Route: 058
     Dates: start: 20071101
  3. SINGULAIR [Suspect]
     Indication: ASTHMA
     Dosage: 10MG PER DAY
     Route: 048
     Dates: start: 20060101
  4. INIPOMP [Concomitant]
     Indication: ASTHMA
     Dosage: 40MG TWICE PER DAY
     Route: 065
     Dates: start: 20071101
  5. NEXIUM [Concomitant]
     Indication: ASTHMA
     Dosage: 3CAP PER DAY
     Route: 048
     Dates: start: 20060101
  6. BRICANYL [Concomitant]
     Indication: ASTHMA
     Dates: start: 20020601
  7. GAVISCON [Concomitant]
     Indication: ASTHMA
     Dates: start: 20030101
  8. MOPRAL [Concomitant]
     Indication: ASTHMA
     Dosage: 40MG PER DAY
     Dates: start: 20030101
  9. NASACORT [Concomitant]
     Indication: ASTHMA
     Dates: start: 20030101
  10. PULMICORT [Concomitant]
     Indication: ASTHMA
     Dates: start: 20020601

REACTIONS (1)
  - BREAST CANCER [None]
